FAERS Safety Report 24424288 (Version 1)
Quarter: 2024Q4

REPORT INFORMATION
  Report Type: Spontaneous
  Country: FR (occurrence: FR)
  Receive Date: 20241010
  Receipt Date: 20241010
  Transmission Date: 20250115
  Serious: Yes (Other)
  Sender: JOHNSON AND JOHNSON
  Company Number: FR-JNJFOC-20241013645

PATIENT
  Age: 47 Year
  Sex: Male

DRUGS (1)
  1. STELARA [Suspect]
     Active Substance: USTEKINUMAB
     Indication: Crohn^s disease
     Dosage: 3 VIALS OF 130
     Route: 040
     Dates: start: 20240408

REACTIONS (4)
  - Cerebral thrombosis [Unknown]
  - Thrombosis [Unknown]
  - Abdominal pain lower [Not Recovered/Not Resolved]
  - Pyrexia [Not Recovered/Not Resolved]
